FAERS Safety Report 8718452 (Version 3)
Quarter: 2013Q1

REPORT INFORMATION
  Report Type: Spontaneous
  Country: US (occurrence: US)
  Receive Date: 20120810
  Receipt Date: 20130109
  Transmission Date: 20140127
  Serious: Yes (Hospitalization, Other)
  Sender: FDA-Public Use
  Company Number: US-ROCHE-1065784

PATIENT
  Sex: Female
  Weight: 85.35 kg

DRUGS (1)
  1. ACCUTANE [Suspect]
     Indication: ACNE
     Route: 065
     Dates: start: 1986

REACTIONS (8)
  - Crohn^s disease [Unknown]
  - Inflammatory bowel disease [Unknown]
  - Depression [Unknown]
  - Ileus [Unknown]
  - Colitis ulcerative [Recovering/Resolving]
  - Intestinal haemorrhage [Unknown]
  - Rectal polyp [Unknown]
  - Irritable bowel syndrome [Unknown]
